FAERS Safety Report 10222406 (Version 1)
Quarter: 2014Q2

REPORT INFORMATION
  Report Type: Report from Study
  Country: US (occurrence: US)
  Receive Date: 20140606
  Receipt Date: 20140606
  Transmission Date: 20141212
  Serious: Yes (Hospitalization)
  Sender: FDA-Public Use
  Company Number: US-ACTELION-A-NJ2014-099785

PATIENT
  Age: 66 Year
  Sex: Male

DRUGS (14)
  1. TRACLEER [Suspect]
     Indication: PULMONARY ARTERIAL HYPERTENSION
     Dosage: 125 MG, BID
     Route: 048
     Dates: start: 201005
  2. NICARDIPINE [Concomitant]
     Dosage: 20 MG, TID
  3. FUROSEMIDE [Concomitant]
     Dosage: 40 MG, BID
  4. AMIODARONE [Concomitant]
     Dosage: 400 MG, QD
  5. METOPROLOL [Concomitant]
     Dosage: 12.5 MG, BID
  6. ZOLOFT [Concomitant]
     Dosage: 50 MG, QD
  7. XANAX [Concomitant]
     Dosage: 0.5 MG, TID
  8. COUMADIN [Concomitant]
     Dosage: UNK, QD
  9. TRAZODONE [Concomitant]
     Dosage: 50 MG, QD
  10. LANSOPRAZOLE [Concomitant]
     Dosage: 30 MG, BID
  11. FLUTICANOSE [Concomitant]
     Dosage: UNK, BID
  12. ALBUTEROL [Concomitant]
     Dosage: UNK, BID
  13. TYLENOL W/CODEINE NO. 3 [Concomitant]
     Dosage: UNK, PRN
  14. SPIRIVA [Concomitant]
     Dosage: 1 PUFF, UNK

REACTIONS (1)
  - Gastric haemorrhage [Unknown]
